FAERS Safety Report 4675851-9 (Version None)
Quarter: 2005Q2

REPORT INFORMATION
  Report Type: 
  Country: None (occurrence: None)
  Receive Date: 20050525
  Receipt Date: 20050513
  Transmission Date: 20051028
  Serious: Yes (Other)
  Sender: FDA-Public Use
  Company Number: 2005075923

PATIENT
  Age: 84 Year
  Sex: Female

DRUGS (4)
  1. CARDURA XL [Suspect]
     Indication: ILL-DEFINED DISORDER
     Dosage: 4 MG (4 MG, DAILY); ORAL
     Route: 048
  2. PARACETAMOL [Concomitant]
  3. AMLODIPINE [Concomitant]
  4. ALLOPURINOL [Concomitant]

REACTIONS (1)
  - EXTRAPYRAMIDAL DISORDER [None]
